FAERS Safety Report 5172375-X (Version None)
Quarter: 2006Q4

REPORT INFORMATION
  Report Type: 
  Country: None (occurrence: None)
  Receive Date: 20061213
  Receipt Date: 20061211
  Transmission Date: 20070319
  Serious: Yes (Death, Other)
  Sender: FDA-Public Use
  Company Number: AU-MERCK-0612AUS00045

PATIENT

DRUGS (1)
  1. FOSAMAX [Suspect]
     Route: 065

REACTIONS (2)
  - DEATH [None]
  - OSTEONECROSIS [None]
